FAERS Safety Report 25933565 (Version 3)
Quarter: 2025Q4

REPORT INFORMATION
  Report Type: Spontaneous
  Country: EU (occurrence: EU)
  Receive Date: 20251017
  Receipt Date: 20251110
  Transmission Date: 20260118
  Serious: Yes (Death, Hospitalization, Other)
  Sender: AUROBINDO
  Company Number: EU-AstrazenecaRSG-2301-D926QC00001(Prod)000007

PATIENT
  Age: 49 Year
  Sex: Female
  Weight: 114 kg

DRUGS (33)
  1. EPIRUBICIN [Suspect]
     Active Substance: EPIRUBICIN
     Indication: Breast cancer
     Dosage: 90 MILLILITRE PER SQUARE METRE
     Route: 042
     Dates: start: 20250505, end: 20250704
  2. PACLITAXEL [Suspect]
     Active Substance: PACLITAXEL
     Indication: Breast cancer
     Dosage: UNK [DOSAGE: MG/M^2 80 MG/M2]
     Route: 042
     Dates: start: 20250124, end: 20250704
  3. PACLITAXEL [Suspect]
     Active Substance: PACLITAXEL
     Dosage: 80 MILLILITRE PER SQUARE METR
     Route: 042
     Dates: start: 20250124, end: 20250124
  4. PACLITAXEL [Suspect]
     Active Substance: PACLITAXEL
     Dosage: 80 MILLILITRE PER SQUARE METRE
     Route: 042
     Dates: start: 20250131, end: 20250131
  5. PACLITAXEL [Suspect]
     Active Substance: PACLITAXEL
     Dosage: UNK MILLIGRAM/SQ. METER
     Route: 042
     Dates: start: 20250214, end: 20250214
  6. PACLITAXEL [Suspect]
     Active Substance: PACLITAXEL
     Dosage: 80 MILLIGRAM/SQ. METER
     Route: 042
     Dates: start: 20250221, end: 20250221
  7. PACLITAXEL [Suspect]
     Active Substance: PACLITAXEL
     Dosage: 80 MILLIGRAM/SQ. METER
     Route: 042
     Dates: start: 20250228, end: 20250228
  8. PACLITAXEL [Suspect]
     Active Substance: PACLITAXEL
     Dosage: 80 MILLIGRAM/SQ. METER
     Route: 042
     Dates: start: 20250307, end: 20250307
  9. PACLITAXEL [Suspect]
     Active Substance: PACLITAXEL
     Dosage: 80 MILLIGRAM/SQ. METER
     Route: 042
     Dates: start: 20250328, end: 20250328
  10. PACLITAXEL [Suspect]
     Active Substance: PACLITAXEL
     Dosage: 80 MILLIGRAM/SQ. METER
     Route: 042
     Dates: start: 20250320, end: 20250320
  11. PACLITAXEL [Suspect]
     Active Substance: PACLITAXEL
     Dosage: 80 MILLIGRAM/SQ. METER
     Route: 042
     Dates: start: 20250404, end: 20250404
  12. PACLITAXEL [Suspect]
     Active Substance: PACLITAXEL
     Dosage: 80 MILLIGRAM/SQ. METER
     Route: 042
     Dates: start: 20250410, end: 20250410
  13. PACLITAXEL [Suspect]
     Active Substance: PACLITAXEL
     Dosage: 80 MILLIGRAM/SQ. METER
     Route: 042
     Dates: start: 20250417, end: 20250417
  14. CARBOPLATIN [Suspect]
     Active Substance: CARBOPLATIN
     Indication: Breast cancer
     Dosage: 225 MILLIGRAM/SQ. METER
     Route: 065
     Dates: start: 20250124, end: 20250417
  15. CARBOPLATIN [Suspect]
     Active Substance: CARBOPLATIN
     Dosage: UNK [UNK MG/M2]
     Route: 065
     Dates: start: 20250124, end: 20250124
  16. CARBOPLATIN [Suspect]
     Active Substance: CARBOPLATIN
     Dosage: UNK [UNK MG/M2]
     Route: 065
     Dates: start: 20250131, end: 20250131
  17. CARBOPLATIN [Suspect]
     Active Substance: CARBOPLATIN
     Dosage: UNK [UNK MG/M2]
     Route: 065
     Dates: start: 20250214, end: 20250214
  18. CARBOPLATIN [Suspect]
     Active Substance: CARBOPLATIN
     Dosage: UNK [UNK MG/M2]
     Route: 065
     Dates: start: 20250221, end: 20250221
  19. CARBOPLATIN [Suspect]
     Active Substance: CARBOPLATIN
     Dosage: UNK [UNK MG/M2]
     Route: 065
     Dates: start: 20250228, end: 20250228
  20. CARBOPLATIN [Suspect]
     Active Substance: CARBOPLATIN
     Dosage: UNK [UNK MG/M2]
     Route: 065
     Dates: start: 20250307, end: 20250307
  21. CARBOPLATIN [Suspect]
     Active Substance: CARBOPLATIN
     Dosage: UNK [UNK MG/M2]
     Route: 065
     Dates: start: 20250320, end: 20250320
  22. CARBOPLATIN [Suspect]
     Active Substance: CARBOPLATIN
     Dosage: UNK [UNK MG/M2]
     Route: 065
     Dates: start: 20250328, end: 20250328
  23. CARBOPLATIN [Suspect]
     Active Substance: CARBOPLATIN
     Dosage: UNK [UNK MG/M2]
     Route: 065
     Dates: start: 20250404, end: 20250404
  24. CARBOPLATIN [Suspect]
     Active Substance: CARBOPLATIN
     Dosage: UNK [UNK MG/M2]
     Route: 065
     Dates: start: 20250410, end: 20250410
  25. CARBOPLATIN [Suspect]
     Active Substance: CARBOPLATIN
     Dosage: UNK [UNK MG/M2]
     Dates: start: 20250417, end: 20250417
  26. PEMBROLIZUMAB [Suspect]
     Active Substance: PEMBROLIZUMAB
     Indication: Breast cancer
     Dosage: 200 MILLIGRAM
     Route: 042
     Dates: start: 20250124, end: 20250124
  27. PEMBROLIZUMAB [Suspect]
     Active Substance: PEMBROLIZUMAB
     Dosage: 200 MILLIGRAM
     Route: 042
     Dates: start: 20250221, end: 20250221
  28. PEMBROLIZUMAB [Suspect]
     Active Substance: PEMBROLIZUMAB
     Dosage: 200 MILLIGRAM
     Route: 042
     Dates: start: 20250320, end: 20250320
  29. PEMBROLIZUMAB [Suspect]
     Active Substance: PEMBROLIZUMAB
     Dosage: 200 MILLIGRAM
     Route: 042
     Dates: start: 20250410, end: 20250410
  30. PEMBROLIZUMAB [Suspect]
     Active Substance: PEMBROLIZUMAB
     Dosage: 200 MILLIGRAM
     Route: 042
     Dates: start: 20250505, end: 20250505
  31. PEMBROLIZUMAB [Suspect]
     Active Substance: PEMBROLIZUMAB
     Dosage: 200 MILLIGRAM
     Route: 042
     Dates: start: 20250605, end: 20250605
  32. PEMBROLIZUMAB [Suspect]
     Active Substance: PEMBROLIZUMAB
     Dosage: 200 MILLIGRAM
     Route: 042
     Dates: start: 20250704, end: 20250704
  33. CYCLOPHOSPHAMIDE [Suspect]
     Active Substance: CYCLOPHOSPHAMIDE
     Indication: Breast cancer
     Dosage: 600 MILLILITRE PER SQUARE METRE
     Route: 042
     Dates: start: 20250505, end: 20250704

REACTIONS (2)
  - Cell death [Fatal]
  - Cholestasis [Fatal]

NARRATIVE: CASE EVENT DATE: 20250813
